FAERS Safety Report 5569310-9 (Version None)
Quarter: 2007Q4

REPORT INFORMATION
  Report Type: 
  Country: None (occurrence: None)
  Receive Date: 20071220
  Receipt Date: 20071031
  Transmission Date: 20080405
  Serious: No
  Sender: FDA-Public Use
  Company Number: A0688498A

PATIENT
  Age: 79 Year
  Sex: Male
  Weight: 75.5 kg

DRUGS (7)
  1. AVODART [Suspect]
     Dosage: .5MG PER DAY
     Route: 048
     Dates: start: 20060911, end: 20070912
  2. NORVASC [Concomitant]
  3. LOVASTATIN [Concomitant]
  4. TOPROL-XL [Concomitant]
  5. COUMADIN [Concomitant]
  6. POTASSIUM SUPPLEMENT [Concomitant]
  7. ASPIRIN [Concomitant]

REACTIONS (1)
  - NIPPLE PAIN [None]
